FAERS Safety Report 7231668-2 (Version None)
Quarter: 2011Q1

REPORT INFORMATION
  Report Type: 
  Country: None (occurrence: None)
  Receive Date: 20110118
  Receipt Date: 20110105
  Transmission Date: 20110831
  Serious: Yes (Life-Threatening, Hospitalization)
  Sender: FDA-Public Use
  Company Number: GB-ELI_LILLY_AND_COMPANY-GB201101000943

PATIENT
  Age: 64 Year
  Sex: Female
  Weight: 65 kg

DRUGS (14)
  1. EFFIENT [Suspect]
     Indication: ACUTE MYOCARDIAL INFARCTION
     Dosage: 60 MG, UNKNOWN
     Route: 048
     Dates: start: 20101111, end: 20101111
  2. PREDNISOLONE [Concomitant]
     Dosage: UNK, UNKNOWN
     Route: 065
  3. CODEINE LINCTUS [Concomitant]
     Dosage: UNK, UNKNOWN
     Route: 065
  4. SIMVASTATIN [Concomitant]
     Dosage: UNK, UNKNOWN
     Route: 065
  5. HYPROMELLOSE [Concomitant]
     Dosage: UNK, UNKNOWN
     Route: 065
  6. CROMOGLICIC ACID [Concomitant]
     Dosage: UNK, UNKNOWN
     Route: 065
  7. ASPIRIN [Concomitant]
     Indication: ACUTE MYOCARDIAL INFARCTION
     Dosage: 300 MG, UNKNOWN
     Route: 048
     Dates: start: 20101111, end: 20101111
  8. BENDROFLUMETHIAZIDE [Concomitant]
     Dosage: UNK, UNKNOWN
     Route: 065
  9. CO-CODAMOL [Concomitant]
     Dosage: UNK, UNKNOWN
     Route: 065
  10. SALBUTAMOL [Concomitant]
     Dosage: UNK, UNKNOWN
     Route: 065
  11. PREMARIN [Concomitant]
     Dosage: UNK, UNKNOWN
     Route: 065
  12. CALCIUM CARBONATE [Concomitant]
     Dosage: UNK, UNKNOWN
     Route: 065
  13. HEPARIN [Concomitant]
     Indication: ACUTE MYOCARDIAL INFARCTION
     Dosage: 5000 IU, UNKNOWN
     Route: 048
     Dates: start: 20101111, end: 20101111
  14. SERETIDE [Concomitant]
     Dosage: UNK, UNKNOWN
     Route: 065

REACTIONS (4)
  - PNEUMONIA [None]
  - VESSEL PUNCTURE SITE HAEMORRHAGE [None]
  - POSTOPERATIVE ILEUS [None]
  - RETROPERITONEAL HAEMORRHAGE [None]
